FAERS Safety Report 16889637 (Version 1)
Quarter: 2019Q4

REPORT INFORMATION
  Report Type: Spontaneous
  Country: DE (occurrence: DE)
  Receive Date: 20191007
  Receipt Date: 20191007
  Transmission Date: 20200122
  Serious: Yes (Congenital Anomaly, Other)
  Sender: FDA-Public Use
  Company Number: DE-PFIZER INC-2019425424

PATIENT
  Age: 1 Day
  Sex: Female
  Weight: 3 kg

DRUGS (11)
  1. VIANI DISKUS [Concomitant]
     Active Substance: FLUTICASONE PROPIONATE\SALMETEROL XINAFOATE
     Dosage: UNK
     Route: 064
     Dates: start: 20170922, end: 20180626
  2. ECURAL FETTCREME [Concomitant]
     Active Substance: MOMETASONE FUROATE
     Dosage: UNK; ONTO VERY SMALL AREA
     Route: 064
  3. CITALOPRAM [Suspect]
     Active Substance: CITALOPRAM HYDROBROMIDE
     Dosage: 20 MG, 1X/DAY; 20 [MG/D (20-0-0) ]
     Route: 064
     Dates: start: 20170922, end: 20180626
  4. HCT DEXCEL [Suspect]
     Active Substance: HYDROCHLOROTHIAZIDE
     Dosage: 12.5 MG, 1X/DAY; 12.5 [MG/D (12.5-0-0) ]
     Route: 064
     Dates: start: 20170922, end: 20180626
  5. L-THYROXIN [LEVOTHYROXINE SODIUM] [Concomitant]
     Active Substance: LEVOTHYROXINE SODIUM
     Dosage: UNK;  100 [?G/D (BIS 50 ?G/D) ]
     Route: 064
     Dates: start: 20170922, end: 20180626
  6. NIFEDIPIN [Suspect]
     Active Substance: NIFEDIPINE
     Dosage: 40 MG, 1X/DAY (40 MG/D (20-0-20))
     Route: 064
  7. AMLODIPINE BESILATE [Suspect]
     Active Substance: AMLODIPINE BESYLATE
     Dosage: 10 MG, 1X/DAY
     Route: 064
  8. VIVIDRIN AKUT [Concomitant]
     Dosage: UNK UNK, AS NEEDED
     Route: 064
  9. VIGANTOLETTEN [Concomitant]
     Active Substance: CHOLECALCIFEROL
     Dosage: UNK; 1000 [I.E./D ]
     Route: 064
     Dates: start: 20170922, end: 20180626
  10. METOHEXAL [METOPROLOL TARTRATE] [Suspect]
     Active Substance: METOPROLOL TARTRATE
     Dosage: 145. MG, 1X/DAY (142.5 MG/D (95-0-47.5))
     Route: 064
     Dates: start: 20170922, end: 20180626
  11. SALBUTAMOL [Concomitant]
     Active Substance: ALBUTEROL
     Dosage: UNK; VERY SELDOM, ONLY IF REQUIRED. PROBABLY EVERY 4 TO 5 WEEKS ONCE.
     Route: 064

REACTIONS (3)
  - Foetal exposure during pregnancy [Unknown]
  - Arrhythmia neonatal [Recovered/Resolved]
  - Atrial septal defect [Not Recovered/Not Resolved]

NARRATIVE: CASE EVENT DATE: 20180626
